FAERS Safety Report 4711999-8 (Version None)
Quarter: 2005Q3

REPORT INFORMATION
  Report Type: 
  Country: None (occurrence: None)
  Receive Date: 20050706
  Receipt Date: 20050418
  Transmission Date: 20060218
  Serious: Yes (Hospitalization)
  Sender: FDA-Public Use
  Company Number: PRA099105

PATIENT
  Age: 62 Year
  Sex: Male

DRUGS (4)
  1. ARANESP [Suspect]
     Indication: ANAEMIA OF MALIGNANT DISEASE
     Dosage: 300 MCG, 1 IN 3 WEEKS, SC
     Route: 058
     Dates: start: 20041013
  2. OXALIPLATIN [Concomitant]
  3. FOLINIC ACID [Concomitant]
  4. FLUOROURACIL [Concomitant]

REACTIONS (1)
  - DEEP VEIN THROMBOSIS [None]
